FAERS Safety Report 8582570-5 (Version None)
Quarter: 2012Q3

REPORT INFORMATION
  Report Type: 
  Country: None (occurrence: None)
  Receive Date: 20120809
  Receipt Date: 20120726
  Transmission Date: 20120928
  Serious: Yes (Hospitalization, Other)
  Sender: FDA-Public Use
  Company Number: DE-ROCHE-1095037

PATIENT
  Sex: Female

DRUGS (3)
  1. PACLITAXEL [Concomitant]
     Indication: BREAST CANCER METASTATIC
     Dates: start: 20100301, end: 20101001
  2. AVASTIN [Suspect]
     Indication: BREAST CANCER METASTATIC
     Dates: start: 20100301
  3. XELODA [Concomitant]
     Indication: BREAST CANCER METASTATIC
     Dates: start: 20100301, end: 20101001

REACTIONS (6)
  - SLEEP DISORDER [None]
  - MUSCULAR WEAKNESS [None]
  - PROTEINURIA [None]
  - ASTHENIA [None]
  - IRRITABILITY [None]
  - MYOPATHY [None]
